FAERS Safety Report 9715990 (Version 1)
Quarter: 2013Q4

REPORT INFORMATION
  Report Type: Spontaneous
  Country: US (occurrence: US)
  Receive Date: 20131127
  Receipt Date: 20131127
  Transmission Date: 20140711
  Serious: Yes (Hospitalization)
  Sender: FDA-Public Use
  Company Number: US-BAYER-2013-142474

PATIENT
  Age: 69 Year
  Sex: Male

DRUGS (5)
  1. ACETYLSALICYLIC ACID({=100 MG) [Suspect]
     Indication: DRUG HYPERSENSITIVITY
     Dosage: 20 MG, ONCE/ DAY 1
  2. ACETYLSALICYLIC ACID({=100 MG) [Suspect]
     Indication: DRUG HYPERSENSITIVITY
     Dosage: 40 MG, ONCE/ 2 HOURS LATER ON DAY 1
  3. ACETYLSALICYLIC ACID({=100 MG) [Suspect]
     Indication: DRUG HYPERSENSITIVITY
     Dosage: 40 MG, ONCE/ DAY 2
  4. ACETYLSALICYLIC ACID({=100 MG) [Suspect]
     Indication: DRUG HYPERSENSITIVITY
     Dosage: 81 MG, ONCE / 3.5 HOURS LATER ON DAY 2
  5. EPINEPHRINE [Suspect]
     Indication: ANAPHYLAXIS TREATMENT
     Dosage: 0.3 MG, ONCE
     Route: 030

REACTIONS (10)
  - Wheezing [Recovered/Resolved]
  - Nasal congestion [Recovered/Resolved]
  - Lacrimation increased [Recovered/Resolved]
  - Anaphylactic reaction [Recovered/Resolved]
  - Respiratory distress [Recovered/Resolved]
  - Pharyngeal oedema [Recovered/Resolved]
  - Sinus tachycardia [Recovered/Resolved]
  - Urticaria [Recovered/Resolved]
  - Kounis syndrome [Recovered/Resolved with Sequelae]
  - Acute myocardial infarction [Recovered/Resolved with Sequelae]
